FAERS Safety Report 9004320 (Version 1)
Quarter: 2013Q1

REPORT INFORMATION
  Report Type: Spontaneous
  Country: US (occurrence: None)
  Receive Date: 20130104
  Receipt Date: 20130104
  Transmission Date: 20140127
  Serious: Yes (Other)
  Sender: FDA-Public Use
  Company Number: None

PATIENT
  Sex: Female

DRUGS (2)
  1. ONDANSETRON [Suspect]
     Indication: NAUSEA
     Dosage: 1 DOSE IM
     Route: 030
     Dates: start: 20120713, end: 20120713
  2. ONDANSETRON [Suspect]
     Indication: NAUSEA
     Route: 048
     Dates: start: 20121215, end: 20121215

REACTIONS (7)
  - Feeling abnormal [None]
  - Arthralgia [None]
  - Injection site pain [None]
  - Groin pain [None]
  - Gait disturbance [None]
  - Nausea [None]
  - Vomiting [None]
